FAERS Safety Report 8190356-9 (Version None)
Quarter: 2012Q1

REPORT INFORMATION
  Report Type: 
  Country: None (occurrence: None)
  Receive Date: 20120307
  Receipt Date: 20120305
  Transmission Date: 20120608
  Serious: Yes (Other)
  Sender: FDA-Public Use
  Company Number: US-PFIZER INC-2012043129

PATIENT
  Sex: Male

DRUGS (2)
  1. LIPITOR [Suspect]
     Dosage: 80 MG, 1X/DAY
  2. NITROSTAT [Suspect]
     Indication: CHEST PAIN
     Dosage: 0.4 MG, AS NEEDED (1 TABLET) FOR CHEST PAIN
     Route: 060

REACTIONS (1)
  - MYOCARDIAL INFARCTION [None]
